FAERS Safety Report 19884312 (Version 1)
Quarter: 2021Q3

REPORT INFORMATION
  Report Type: Spontaneous
  Country: US (occurrence: US)
  Receive Date: 20210923
  Receipt Date: 20210923
  Transmission Date: 20211014
  Serious: Yes (Hospitalization)
  Sender: FDA-Public Use
  Company Number: None

PATIENT
  Age: 68 Year
  Sex: Female
  Weight: 70.4 kg

DRUGS (1)
  1. ASPIRIN. [Suspect]
     Active Substance: ASPIRIN
     Dates: end: 20210831

REACTIONS (4)
  - Central nervous system lesion [None]
  - Headache [None]
  - Glioblastoma [None]
  - Visual impairment [None]

NARRATIVE: CASE EVENT DATE: 20210901
